FAERS Safety Report 9731867 (Version 1)
Quarter: 2013Q4

REPORT INFORMATION
  Report Type: Spontaneous
  Country: US (occurrence: None)
  Receive Date: 20131204
  Receipt Date: 20131204
  Transmission Date: 20140711
  Serious: Yes (Other)
  Sender: FDA-Public Use
  Company Number: None

PATIENT
  Age: 61 Year
  Sex: Male
  Weight: 102.97 kg

DRUGS (2)
  1. IRBESARTAN [Suspect]
     Indication: HYPERTENSION
     Dosage: BY MOUTH
     Dates: start: 20131123, end: 20131125
  2. IRBESARTAN [Suspect]
     Indication: PROSTATE CANCER
     Dosage: BY MOUTH
     Dates: start: 20131123, end: 20131125

REACTIONS (2)
  - Blood pressure increased [None]
  - Product substitution issue [None]
